FAERS Safety Report 4969268-7 (Version None)
Quarter: 2006Q2

REPORT INFORMATION
  Report Type: 
  Country: None (occurrence: None)
  Receive Date: 20060405
  Receipt Date: 20060323
  Transmission Date: 20061013
  Serious: Yes (Other)
  Sender: FDA-Public Use
  Company Number: 2006041281

PATIENT
  Sex: Female
  Weight: 79.3795 kg

DRUGS (6)
  1. DILANTIN [Suspect]
     Indication: ILL-DEFINED DISORDER
  2. PROCRIT [Suspect]
     Indication: ANAEMIA
     Dosage: 1 IN 1 WK, SUBCUTANEOUS
     Route: 058
  3. WARFARIN SODIUM [Concomitant]
  4. KEPPRA [Concomitant]
  5. MESALAMINE [Concomitant]
  6. PREDNISONE TAB [Concomitant]

REACTIONS (3)
  - DRUG INEFFECTIVE [None]
  - HAEMOGLOBIN DECREASED [None]
  - RETICULOCYTE COUNT DECREASED [None]
